FAERS Safety Report 10309916 (Version 1)
Quarter: 2014Q3

REPORT INFORMATION
  Report Type: Spontaneous
  Country: RU (occurrence: RU)
  Receive Date: 20140717
  Receipt Date: 20140717
  Transmission Date: 20150326
  Serious: Yes (Other)
  Sender: FDA-Public Use
  Company Number: RU-ROCHE-1435286

PATIENT

DRUGS (5)
  1. MABTHERA [Suspect]
     Active Substance: RITUXIMAB
     Indication: PRODUCT USED FOR UNKNOWN INDICATION
     Route: 041
  2. DEXAMETHASONE. [Concomitant]
     Active Substance: DEXAMETHASONE
     Indication: PREMEDICATION
     Route: 042
  3. PARACETAMOL [Concomitant]
     Active Substance: ACETAMINOPHEN
     Indication: PREMEDICATION
  4. SUPRASTIN [Concomitant]
     Active Substance: CHLOROPYRAMINE HYDROCHLORIDE
     Indication: PREMEDICATION
  5. METHOTREXATE [Concomitant]
     Active Substance: METHOTREXATE
     Indication: PREMEDICATION

REACTIONS (13)
  - Guillain-Barre syndrome [Unknown]
  - Fracture [Unknown]
  - Cervix carcinoma recurrent [Unknown]
  - Raynaud^s phenomenon [Unknown]
  - Intestinal adenocarcinoma [Unknown]
  - Bladder cancer [Unknown]
  - Extremity necrosis [Unknown]
  - Mononeuritis [Recovered/Resolved]
  - Vasculitis gastrointestinal [Recovered/Resolved]
  - Drug ineffective [Unknown]
  - Angioedema [Unknown]
  - Infusion related reaction [Unknown]
  - Urticaria [Unknown]
